FAERS Safety Report 22613278 (Version 8)
Quarter: 2025Q2

REPORT INFORMATION
  Report Type: Spontaneous
  Country: JP (occurrence: JP)
  Receive Date: 20230619
  Receipt Date: 20250610
  Transmission Date: 20250717
  Serious: Yes (Other)
  Sender: TAKEDA
  Company Number: JP-TAKEDA-2023TJP007762

PATIENT
  Age: 37 Year
  Sex: Male
  Weight: 68 kg

DRUGS (5)
  1. ENTYVIO [Suspect]
     Active Substance: VEDOLIZUMAB
     Indication: Colitis ulcerative
     Dosage: 300 MILLIGRAM, Q8WEEKS
     Dates: start: 20221226, end: 20230531
  2. MESALAMINE [Suspect]
     Active Substance: MESALAMINE
     Indication: Colitis ulcerative
  3. LIALDA [Concomitant]
     Active Substance: MESALAMINE
     Dosage: 4800 MILLIGRAM, QD
     Dates: start: 20221130
  4. RAMOSETRON HYDROCHLORIDE [Concomitant]
     Active Substance: RAMOSETRON HYDROCHLORIDE
     Dosage: 5 MICROGRAM, QD
     Dates: start: 20230222
  5. FILGOTINIB MALEATE [Concomitant]
     Active Substance: FILGOTINIB MALEATE

REACTIONS (4)
  - Sacral pain [Not Recovered/Not Resolved]
  - Spondylitis [Unknown]
  - Enteropathic spondylitis [Recovering/Resolving]
  - Drug ineffective [Unknown]

NARRATIVE: CASE EVENT DATE: 20230405
